FAERS Safety Report 15675386 (Version 1)
Quarter: 2018Q4

REPORT INFORMATION
  Report Type: Spontaneous
  Country: US (occurrence: US)
  Receive Date: 20181129
  Receipt Date: 20181129
  Transmission Date: 20190205
  Serious: Yes (Other)
  Sender: FDA-Public Use
  Company Number: None

PATIENT
  Age: 79 Year
  Sex: Female
  Weight: 52.65 kg

DRUGS (11)
  1. HYDROMORPHONE [Concomitant]
     Active Substance: HYDROMORPHONE
  2. IBRANCE [Suspect]
     Active Substance: PALBOCICLIB
     Indication: BONE CANCER
     Dosage: ?          OTHER FREQUENCY:DAILY X21D, 7D OFF;?
     Route: 048
     Dates: start: 20180810
  3. LETROZOLE. [Suspect]
     Active Substance: LETROZOLE
     Indication: BONE CANCER
     Route: 048
     Dates: start: 20180810
  4. TYLENOL EXTRA STRENGTH [Concomitant]
     Active Substance: ACETAMINOPHEN
  5. IBRANCE [Suspect]
     Active Substance: PALBOCICLIB
     Indication: BREAST CANCER
     Dosage: ?          OTHER FREQUENCY:DAILY X21D, 7D OFF;?
     Route: 048
     Dates: start: 20180810
  6. CELEBREX [Concomitant]
     Active Substance: CELECOXIB
  7. IMITREX [Concomitant]
     Active Substance: SUMATRIPTAN SUCCINATE
  8. LETROZOLE. [Suspect]
     Active Substance: LETROZOLE
     Indication: BREAST CANCER
     Route: 048
     Dates: start: 20180810
  9. FENTANYL. [Concomitant]
     Active Substance: FENTANYL
  10. MUTLIVITAMINS WITH FLUORIDE [Concomitant]
  11. SENNA LAXATIVE [Concomitant]
     Active Substance: SENNOSIDES

REACTIONS (1)
  - Dyspepsia [None]

NARRATIVE: CASE EVENT DATE: 20181129
